FAERS Safety Report 9365806 (Version 1)
Quarter: 2013Q2

REPORT INFORMATION
  Report Type: Report from Study
  Country: IL (occurrence: IL)
  Receive Date: 20130625
  Receipt Date: 20130625
  Transmission Date: 20140414
  Serious: Yes (Death, Congenital Anomaly)
  Sender: FDA-Public Use
  Company Number: PHHY2013IL064298

PATIENT
  Sex: 0

DRUGS (1)
  1. SANDOSTATIN LAR [Suspect]
     Indication: CARCINOID TUMOUR
     Dosage: 40 MG, 1Q4W
     Route: 064
     Dates: start: 20110301, end: 20121106

REACTIONS (1)
  - Klinefelter^s syndrome [Fatal]
